FAERS Safety Report 4601618-3 (Version None)
Quarter: 2005Q1

REPORT INFORMATION
  Report Type: 
  Country: None (occurrence: None)
  Receive Date: 20050308
  Receipt Date: 20050228
  Transmission Date: 20050727
  Serious: Yes (Other)
  Sender: FDA-Public Use
  Company Number: US-GLAXOSMITHKLINE-A0548669A

PATIENT
  Sex: Female
  Weight: 2.5 kg

DRUGS (2)
  1. COMBIVIR [Suspect]
     Indication: HIV INFECTION
     Dosage: 2TAB PER DAY
     Route: 048
     Dates: start: 19990501
  2. KALETRA [Suspect]
     Indication: HIV INFECTION
     Dosage: 6TAB PER DAY
     Route: 048
     Dates: start: 19990501

REACTIONS (3)
  - DEVELOPMENTAL DELAY [None]
  - DRUG EXPOSURE DURING PREGNANCY [None]
  - RENAL AGENESIS [None]
